FAERS Safety Report 5343286-1 (Version None)
Quarter: 2007Q2

REPORT INFORMATION
  Report Type: 
  Country: None (occurrence: None)
  Receive Date: 20070502
  Receipt Date: 20060914
  Transmission Date: 20071010
  Serious: Yes (Other)
  Sender: FDA-Public Use
  Company Number: PHEH2006US11768

PATIENT
  Sex: Male

DRUGS (3)
  1. LOTREL [Suspect]
     Dosage: 10/40, QD, ORAL
     Route: 048
  2. TOPROL-XL [Concomitant]
  3. DIOVAN HCT [Concomitant]

REACTIONS (2)
  - ANGIOEDEMA [None]
  - SWELLING FACE [None]
